FAERS Safety Report 19009941 (Version 1)
Quarter: 2021Q1

REPORT INFORMATION
  Report Type: Report from Study
  Country: IT (occurrence: IT)
  Receive Date: 20210315
  Receipt Date: 20210315
  Transmission Date: 20210420
  Serious: Yes (Hospitalization)
  Sender: FDA-Public Use
  Company Number: IT-TEVA-2021-IT-1888157

PATIENT
  Age: 81 Year
  Sex: Male

DRUGS (20)
  1. ATORVASTATIN [Concomitant]
     Active Substance: ATORVASTATIN
  2. TRESIBA [Concomitant]
     Active Substance: INSULIN DEGLUDEC
  3. REVINTY ELLIPTA 92 MICROGRAMS/22 MICROGRAMS INHALATION POWDER, PRE?DIS [Concomitant]
  4. PANTORC [Concomitant]
     Active Substance: PANTOPRAZOLE SODIUM
  5. FULCRO [Concomitant]
     Active Substance: FENOFIBRATE
  6. DUTASTERIDE. [Concomitant]
     Active Substance: DUTASTERIDE
  7. OMNIC [Suspect]
     Active Substance: TAMSULOSIN HYDROCHLORIDE
     Dates: start: 20200101, end: 20210123
  8. TERAPROST 5 MG COMPRESSE [Suspect]
     Active Substance: TERAZOSIN HYDROCHLORIDE
     Dosage: 1 DF
     Route: 048
     Dates: start: 20200101, end: 20210123
  9. ADENURIC [Concomitant]
     Active Substance: FEBUXOSTAT
  10. ZETIA [Concomitant]
     Active Substance: EZETIMIBE
     Dosage: 10 MG
  11. LASIX [Suspect]
     Active Substance: FUROSEMIDE
     Dosage: 1 DF
     Route: 048
     Dates: start: 20200101, end: 20210123
  12. ACETYLSALICYLIC ACID [Concomitant]
     Active Substance: ASPIRIN
  13. AMLODIPINE [Suspect]
     Active Substance: AMLODIPINE BESYLATE
     Dosage: 5 MG
     Route: 048
     Dates: start: 20200101, end: 20210123
  14. SEQUACOR 2,5 MG COMPRESSE RIVESTITE CON FILM [Suspect]
     Active Substance: BISOPROLOL FUMARATE
     Dosage: 1 DF
     Route: 048
     Dates: start: 20200101, end: 20210123
  15. EUTIROX 50 MICROGRAMMI COMPRESSE [Concomitant]
     Active Substance: LEVOTHYROXINE SODIUM
  16. ONBREZ BREEZHALER [Concomitant]
     Active Substance: INDACATEROL
  17. ATORVASTATIN [Concomitant]
     Active Substance: ATORVASTATIN
     Dosage: 5 MG
  18. ENALAPRIL [Suspect]
     Active Substance: ENALAPRIL
     Dosage: 20 MG
     Route: 048
     Dates: start: 20200101, end: 20210123
  19. ALLOPURINOL. [Concomitant]
     Active Substance: ALLOPURINOL
     Dosage: 300 MG
  20. ZOLOFT [Concomitant]
     Active Substance: SERTRALINE HYDROCHLORIDE

REACTIONS (3)
  - Orthostatic hypotension [Recovering/Resolving]
  - Vertigo [Recovering/Resolving]
  - Asthenia [Recovering/Resolving]

NARRATIVE: CASE EVENT DATE: 20210123
